FAERS Safety Report 8343643-5 (Version None)
Quarter: 2012Q2

REPORT INFORMATION
  Report Type: 
  Country: None (occurrence: None)
  Receive Date: 20120508
  Receipt Date: 20100909
  Transmission Date: 20120825
  Serious: No
  Sender: FDA-Public Use
  Company Number: US-TEVA-2010003725

PATIENT
  Sex: Male
  Weight: 86.26 kg

DRUGS (2)
  1. TREANDA [Suspect]
     Indication: MANTLE CELL LYMPHOMA
     Route: 042
     Dates: start: 20100223, end: 20100707
  2. RITUXAN [Concomitant]

REACTIONS (5)
  - INFUSION SITE ERYTHEMA [None]
  - EXTRAVASATION [None]
  - INFUSION SITE PAIN [None]
  - INFUSION SITE SWELLING [None]
  - INJECTION SITE MASS [None]
